FAERS Safety Report 8471496-3 (Version None)
Quarter: 2012Q2

REPORT INFORMATION
  Report Type: 
  Country: None (occurrence: None)
  Receive Date: 20120627
  Receipt Date: 20120622
  Transmission Date: 20120825
  Serious: Yes (Hospitalization, Other)
  Sender: FDA-Public Use
  Company Number: US-ROCHE-751344

PATIENT
  Sex: Female
  Weight: 92.616 kg

DRUGS (2)
  1. ACCUTANE [Suspect]
     Indication: ACNE
     Dates: start: 19970101, end: 19980101
  2. SYNTHROID [Concomitant]

REACTIONS (9)
  - BIPOLAR I DISORDER [None]
  - SUICIDE ATTEMPT [None]
  - RENAL CANCER [None]
  - COLITIS ULCERATIVE [None]
  - MENTAL DISORDER [None]
  - IRRITABLE BOWEL SYNDROME [None]
  - DEPRESSION [None]
  - CHOLELITHIASIS [None]
  - INFLAMMATORY BOWEL DISEASE [None]
